FAERS Safety Report 25396262 (Version 1)
Quarter: 2025Q2

REPORT INFORMATION
  Report Type: Spontaneous
  Country: US (occurrence: US)
  Receive Date: 20250604
  Receipt Date: 20250604
  Transmission Date: 20250717
  Serious: No
  Sender: PFIZER
  Company Number: US-PFIZER INC-PV202500066543

PATIENT
  Age: 65 Year
  Sex: Female

DRUGS (5)
  1. TUKYSA [Interacting]
     Active Substance: TUCATINIB
  2. ATORVASTATIN [Interacting]
     Active Substance: ATORVASTATIN
  3. HYDROCODONE [Interacting]
     Active Substance: HYDROCODONE
  4. OMEPRAZOLE [Interacting]
     Active Substance: OMEPRAZOLE
  5. ZOLPIDEM [Interacting]
     Active Substance: ZOLPIDEM TARTRATE

REACTIONS (1)
  - Drug interaction [Unknown]
